FAERS Safety Report 7508613-5 (Version None)
Quarter: 2011Q2

REPORT INFORMATION
  Report Type: 
  Country: None (occurrence: None)
  Receive Date: 20110527
  Receipt Date: 20110202
  Transmission Date: 20111010
  Serious: No
  Sender: FDA-Public Use
  Company Number: A0912325A

PATIENT
  Age: 50 Year
  Sex: Female
  Weight: 64 kg

DRUGS (16)
  1. IMODIUM [Concomitant]
     Dosage: .2MG AS REQUIRED
     Route: 048
  2. TRACLEER [Concomitant]
     Dosage: 125MG TWICE PER DAY
     Route: 048
  3. DOCUSATE [Concomitant]
     Dosage: 1CAP AS REQUIRED
     Route: 048
  4. DIFLUPREDNATE [Concomitant]
     Dosage: 2DROP TWICE PER DAY
     Route: 047
  5. FLOLAN [Suspect]
     Indication: PULMONARY ARTERIAL HYPERTENSION
     Dates: start: 20100628
  6. PREDNISONE [Concomitant]
     Dosage: 5MG PER DAY
     Route: 048
  7. LANSOPRAZOLE [Concomitant]
     Dosage: 30MG TWICE PER DAY
     Route: 048
  8. LASIX [Concomitant]
     Dosage: 40MG PER DAY
     Route: 048
  9. DIGOXIN [Concomitant]
     Dosage: 125MCG PER DAY
     Route: 048
  10. FLOLAN [Suspect]
     Indication: PULMONARY ARTERIAL HYPERTENSION
     Dosage: 44NGKM UNKNOWN
     Route: 042
     Dates: start: 20100628
  11. OXYGEN [Concomitant]
  12. FOSAMAX [Concomitant]
     Dosage: 1TAB WEEKLY
     Route: 048
  13. CODEINE + GUAIFENESIN [Concomitant]
     Route: 048
  14. KDUR [Concomitant]
     Dosage: 30MEQ PER DAY
     Route: 048
  15. ATIVAN [Concomitant]
     Dosage: .5MG AS REQUIRED
     Route: 048
  16. HYDROCORTISONE CREAM [Concomitant]
     Dosage: 1APP AS REQUIRED
     Route: 061

REACTIONS (4)
  - FLUSHING [None]
  - INSOMNIA [None]
  - HOT FLUSH [None]
  - DENTAL CARIES [None]
